FAERS Safety Report 5145745-3 (Version None)
Quarter: 2006Q4

REPORT INFORMATION
  Report Type: 
  Country: None (occurrence: None)
  Receive Date: 20060915
  Receipt Date: 20060515
  Transmission Date: 20070319
  Serious: No
  Sender: FDA-Public Use
  Company Number: 2006RL000174

PATIENT
  Age: 64 Year
  Sex: Female
  Weight: 60.3284 kg

DRUGS (8)
  1. OMACOR [Suspect]
     Indication: BLOOD TRIGLYCERIDES INCREASED
     Dosage: 2 GM;BID;PO
     Route: 048
     Dates: start: 20060120
  2. ACIPHEX [Concomitant]
  3. ZETIA [Concomitant]
  4. URSO [Concomitant]
  5. LEVOXYL [Concomitant]
  6. MACROBID [Concomitant]
  7. CALTRATE [Concomitant]
  8. CITRUCEL [Concomitant]

REACTIONS (3)
  - DYSPEPSIA [None]
  - PHOTOPSIA [None]
  - VITREOUS FLOATERS [None]
